FAERS Safety Report 26073537 (Version 1)
Quarter: 2025Q4

REPORT INFORMATION
  Report Type: Spontaneous
  Country: JP (occurrence: JP)
  Receive Date: 20251121
  Receipt Date: 20251121
  Transmission Date: 20260118
  Serious: Yes (Death, Life-Threatening, Hospitalization, Other)
  Sender: ASTELLAS
  Company Number: JP-ASTELLAS-2023JP007212

PATIENT
  Age: 82 Year
  Sex: Male
  Weight: 70 kg

DRUGS (42)
  1. PADCEV [Suspect]
     Active Substance: ENFORTUMAB VEDOTIN-EJFV
     Indication: Metastatic carcinoma of the bladder
     Dosage: 71.75 MG/DAY, ONCE WEEKLY, DOSED FOR 3 CONSECUTIVE WEEKS AND INTERRUPTED ON 4TH WEEK
     Route: 042
     Dates: start: 20230301, end: 20230308
  2. PADCEV [Suspect]
     Active Substance: ENFORTUMAB VEDOTIN-EJFV
     Route: 042
     Dates: start: 20230524, end: 20230607
  3. GEMCITABINE HYDROCHLORIDE [Concomitant]
     Active Substance: GEMCITABINE HYDROCHLORIDE
     Indication: Product used for unknown indication
     Route: 065
     Dates: start: 201810
  4. KEYTRUDA [Concomitant]
     Active Substance: PEMBROLIZUMAB
     Indication: Product used for unknown indication
     Route: 065
     Dates: start: 202207
  5. Trazenta Tablets 5mg [Concomitant]
     Indication: Product used for unknown indication
     Route: 048
     Dates: end: 20230613
  6. ROSUZET Combination Tablets LD [Concomitant]
     Indication: Product used for unknown indication
     Route: 048
     Dates: end: 20230613
  7. NovoRapid Injection FlexTouch [Concomitant]
     Indication: Product used for unknown indication
     Dosage: BEFORE BREAKFAST, BEFORE LUNCH, BEFORE DINNER
     Route: 065
     Dates: end: 20230613
  8. Tresiba Injection FlexTouch [Concomitant]
     Indication: Product used for unknown indication
     Dosage: BEFORE DINNER
     Route: 065
     Dates: end: 20230613
  9. CALONAL tablets 200 mg [Concomitant]
     Indication: Product used for unknown indication
     Route: 048
     Dates: end: 20230613
  10. ELIQUIS [Concomitant]
     Active Substance: APIXABAN
     Indication: Product used for unknown indication
     Route: 048
     Dates: end: 20230613
  11. LANSOPRAZOLE OD Tablets 15 mg?TOWA? [Concomitant]
     Indication: Product used for unknown indication
     Route: 048
     Dates: end: 20230613
  12. Eldecalcitol Capsules 0.75 ?g?Nichi-Iko? [Concomitant]
     Indication: Product used for unknown indication
     Route: 048
     Dates: end: 20230613
  13. Medrol Tablets 4mg [Concomitant]
     Indication: Product used for unknown indication
     Route: 048
     Dates: end: 20230613
  14. SODIUM FERROUS CITRATE Tablets 50 mg [SAWAI] [Concomitant]
     Indication: Product used for unknown indication
     Route: 048
     Dates: end: 20230613
  15. LOPERAMIDE TABLETS 1 mg [EMEC] [Concomitant]
     Indication: Product used for unknown indication
     Route: 048
     Dates: end: 20230613
  16. Tramal OD Tablets 25 mg [Concomitant]
     Indication: Product used for unknown indication
     Route: 048
     Dates: end: 20230613
  17. Domperidone tab.10mg?EMEC? [Concomitant]
     Indication: Product used for unknown indication
     Route: 048
  18. FEBUXOSTAT Tablets 10 mg [SAWAI] [Concomitant]
     Indication: Product used for unknown indication
     Route: 048
     Dates: end: 20230613
  19. Halfdigoxin-KY Tablets 0.125 mg [Concomitant]
     Indication: Product used for unknown indication
     Route: 048
     Dates: end: 20230613
  20. CARVEDILOL Tablets 10 mg [SAWAI] [Concomitant]
     Indication: Product used for unknown indication
     Route: 048
     Dates: end: 20230613
  21. THYRADIN-S TABLETS 50 ?g [Concomitant]
     Indication: Product used for unknown indication
     Dosage: 150?G EVEN DAYS, 200?G ODD DAYS
     Route: 048
  22. THYRADIN-S TABLETS 50 ?g [Concomitant]
     Dosage: 150?G EVEN DAYS, 200?G ODD DAYS
     Route: 048
     Dates: start: 20230618
  23. PREDONINE Tablets 5 mg [Concomitant]
     Indication: Product used for unknown indication
     Route: 065
  24. VONOPRAZAN FUMARATE [Concomitant]
     Active Substance: VONOPRAZAN FUMARATE
     Indication: Product used for unknown indication
     Route: 065
  25. Loxoprofen Tablets 60 mg?EMEC? [Concomitant]
     Indication: Product used for unknown indication
     Route: 065
  26. MEROPENEM [Concomitant]
     Active Substance: MEROPENEM
     Indication: Product used for unknown indication
     Route: 065
     Dates: start: 20230613
  27. MEROPENEM [Concomitant]
     Active Substance: MEROPENEM
     Indication: Septic shock
  28. SOLU-MEDROL [Concomitant]
     Active Substance: METHYLPREDNISOLONE SODIUM SUCCINATE
     Indication: Toxic epidermal necrolysis
     Route: 042
     Dates: start: 20230615, end: 20230617
  29. SOLU-MEDROL [Concomitant]
     Active Substance: METHYLPREDNISOLONE SODIUM SUCCINATE
     Indication: Stevens-Johnson syndrome
     Route: 042
     Dates: start: 20230618, end: 20230626
  30. SOLU-MEDROL [Concomitant]
     Active Substance: METHYLPREDNISOLONE SODIUM SUCCINATE
     Route: 042
     Dates: start: 20230627, end: 20230703
  31. SOLU-MEDROL [Concomitant]
     Active Substance: METHYLPREDNISOLONE SODIUM SUCCINATE
     Route: 042
     Dates: start: 20230704, end: 20230711
  32. SOLU-MEDROL [Concomitant]
     Active Substance: METHYLPREDNISOLONE SODIUM SUCCINATE
     Route: 065
     Dates: start: 20230614, end: 20230614
  33. SOLU-MEDROL [Concomitant]
     Active Substance: METHYLPREDNISOLONE SODIUM SUCCINATE
     Route: 042
     Dates: start: 20230712, end: 20230717
  34. SOLU-MEDROL [Concomitant]
     Active Substance: METHYLPREDNISOLONE SODIUM SUCCINATE
     Route: 042
     Dates: start: 20230718, end: 20230725
  35. PETROLATUM [Concomitant]
     Active Substance: PETROLATUM
     Indication: Toxic epidermal necrolysis
     Route: 061
     Dates: start: 20230614
  36. PETROLATUM [Concomitant]
     Active Substance: PETROLATUM
     Indication: Stevens-Johnson syndrome
  37. KENKETU GLOVENIN [Concomitant]
     Indication: Toxic epidermal necrolysis
     Dosage: 22.5G/DAY
     Route: 042
     Dates: start: 20230614, end: 20230618
  38. KENKETU GLOVENIN [Concomitant]
     Indication: Stevens-Johnson syndrome
  39. IMMUNOGLOBULIN [Concomitant]
     Indication: Toxic epidermal necrolysis
     Route: 042
     Dates: start: 20230615, end: 20230619
  40. IMMUNOGLOBULIN [Concomitant]
     Indication: Stevens-Johnson syndrome
  41. MICAFUNGIN [Concomitant]
     Active Substance: MICAFUNGIN SODIUM
     Indication: Product used for unknown indication
     Route: 065
  42. MICAFUNGIN [Concomitant]
     Active Substance: MICAFUNGIN SODIUM
     Indication: Septic shock

REACTIONS (7)
  - Toxic epidermal necrolysis [Fatal]
  - Stevens-Johnson syndrome [Fatal]
  - Septic shock [Fatal]
  - Multiple organ dysfunction syndrome [Fatal]
  - Diabetic ketoacidosis [Recovering/Resolving]
  - Palpitations [Recovered/Resolved]
  - Pruritus [Unknown]

NARRATIVE: CASE EVENT DATE: 20230301
